FAERS Safety Report 18402498 (Version 2)
Quarter: 2020Q4

REPORT INFORMATION
  Report Type: Spontaneous
  Country: US (occurrence: US)
  Receive Date: 20201019
  Receipt Date: 20201028
  Transmission Date: 20210114
  Serious: Yes (Other)
  Sender: FDA-Public Use
  Company Number: US-ALLERGAN-2039573US

PATIENT
  Sex: Male

DRUGS (1)
  1. DURYSTA [Suspect]
     Active Substance: BIMATOPROST
     Indication: OPEN ANGLE GLAUCOMA
     Dosage: 10 ?G, SINGLE
     Route: 031
     Dates: start: 20201007, end: 20201007

REACTIONS (3)
  - Endophthalmitis [Not Recovered/Not Resolved]
  - Haemorrhage [Unknown]
  - Eye pain [Not Recovered/Not Resolved]

NARRATIVE: CASE EVENT DATE: 202010
